FAERS Safety Report 5272649-8 (Version None)
Quarter: 2007Q1

REPORT INFORMATION
  Report Type: 
  Country: None (occurrence: None)
  Receive Date: 20070320
  Receipt Date: 20070320
  Transmission Date: 20070707
  Serious: Yes (Death, Other)
  Sender: FDA-Public Use
  Company Number: None

PATIENT
  Age: 63 Year
  Sex: Male
  Weight: 81.1939 kg

DRUGS (4)
  1. LEVAQUIN [Suspect]
     Indication: BIOPSY
     Dosage: 750 MG TABLET MCN 1 A DAY 7
     Dates: start: 20060930, end: 20061006
  2. LEVAQUIN [Suspect]
     Indication: INFECTION
     Dosage: 750 MG TABLET MCN 1 A DAY 7
     Dates: start: 20060930, end: 20061006
  3. CEPHALEXIN [Suspect]
     Indication: BIOPSY
     Dosage: 500 MG CAPSULE TEV 2 A DAY 5
     Dates: start: 20060925, end: 20060929
  4. CEPHALEXIN [Suspect]
     Indication: POST PROCEDURAL INFECTION
     Dosage: 500 MG CAPSULE TEV 2 A DAY 5
     Dates: start: 20060925, end: 20060929

REACTIONS (5)
  - COMPLETED SUICIDE [None]
  - DEPRESSION [None]
  - INFECTION [None]
  - MOOD ALTERED [None]
  - SUICIDAL IDEATION [None]
